FAERS Safety Report 8778969 (Version 2)
Quarter: 2012Q4

REPORT INFORMATION
  Report Type: 
  Country: US (occurrence: US)
  Receive Date: 20120912
  Receipt Date: 20120912
  Transmission Date: 20130627
  Serious: No
  Sender: FDA-Public Use
  Company Number: US-ASTRAZENECA-2012SE51650

PATIENT
  Age: 63 Year
  Sex: Female

DRUGS (6)
  1. CAPRELSA [Suspect]
     Indication: THYROID CANCER
     Route: 048
     Dates: start: 20120714
  2. ASPIRIN ADULT LOW STRENGTH [Concomitant]
     Route: 048
  3. DYAZIDE [Concomitant]
     Dosage: 37.5-25MG
     Route: 048
  4. LEVOTHROID [Concomitant]
     Route: 048
  5. PRILOSEC [Concomitant]
     Route: 048
  6. BISOPROLOL/HYDROCHLOROTHIAZIDE [Concomitant]
     Dosage: 10-6.25MG
     Route: 048

REACTIONS (6)
  - Blood pressure abnormal [Unknown]
  - Hypoaesthesia [Unknown]
  - Dizziness [Unknown]
  - Syncope [Unknown]
  - Dry skin [Not Recovered/Not Resolved]
  - Fatigue [Not Recovered/Not Resolved]
